FAERS Safety Report 10179587 (Version 1)
Quarter: 2014Q2

REPORT INFORMATION
  Report Type: Spontaneous
  Country: US (occurrence: US)
  Receive Date: 20140519
  Receipt Date: 20140519
  Transmission Date: 20141212
  Serious: No
  Sender: FDA-Public Use
  Company Number: US-PFIZER INC-2014136350

PATIENT
  Sex: Female

DRUGS (2)
  1. GABAPENTIN [Suspect]
     Indication: HERPES ZOSTER
     Dosage: 300 MG, 3X/DAY
     Dates: start: 2014, end: 2014
  2. GABAPENTIN [Suspect]
     Dosage: 400 MG, 3X/DAY
     Dates: start: 2014, end: 2014

REACTIONS (1)
  - Abdominal pain upper [Unknown]
